FAERS Safety Report 16104519 (Version 1)
Quarter: 2019Q1

REPORT INFORMATION
  Report Type: Spontaneous
  Country: GB (occurrence: GB)
  Receive Date: 20190322
  Receipt Date: 20190322
  Transmission Date: 20190418
  Serious: No
  Sender: FDA-Public Use
  Company Number: GB-B. BRAUN MEDICAL INC.-2064406

PATIENT
  Sex: Female

DRUGS (1)
  1. DEXTROSE AND SODIUM CHLORIDE INJECTIONS USP 0264-7605-00 0264-7605-10 [Suspect]
     Active Substance: DEXTROSE\SODIUM CHLORIDE
     Route: 065

REACTIONS (1)
  - Dehydration [Unknown]

NARRATIVE: CASE EVENT DATE: 20180127
